FAERS Safety Report 22035982 (Version 1)
Quarter: 2023Q1

REPORT INFORMATION
  Report Type: Spontaneous
  Country: SE (occurrence: None)
  Receive Date: 20230224
  Receipt Date: 20230224
  Transmission Date: 20230417
  Serious: Yes (Death, Other)
  Sender: FDA-Public Use
  Company Number: 2023A042780

PATIENT
  Age: 37 Year
  Sex: Male
  Weight: 100 kg

DRUGS (13)
  1. QUETIAPINE [Suspect]
     Active Substance: QUETIAPINE
     Indication: Sleep disorder
     Dosage: 1400 MILLIGRAM, DAILY ((7 TABLETS AT 20.00)
     Dates: start: 20220324
  2. MELATONIN [Suspect]
     Active Substance: MELATONIN
     Indication: Product used for unknown indication
     Dosage: 10 MILLIGRAM, DAILY
     Dates: start: 20220407
  3. INTUNIV [Suspect]
     Active Substance: GUANFACINE HYDROCHLORIDE
     Indication: Attention deficit hyperactivity disorder
     Dosage: 2 MILLIGRAM, DAILY
     Dates: start: 20220609
  4. INTUNIV [Suspect]
     Active Substance: GUANFACINE HYDROCHLORIDE
     Indication: Attention deficit hyperactivity disorder
     Dosage: UNK ( 1 PIECE AT 08:00, 2 AT 20:00)
     Dates: start: 20220511
  5. OLANZAPINE [Suspect]
     Active Substance: OLANZAPINE
     Indication: Anxiety
     Dosage: 5 MILLIGRAM, DAILY
     Dates: start: 20220407
  6. OLANZAPINE [Suspect]
     Active Substance: OLANZAPINE
     Indication: Anxiety
     Dosage: 20 MILLIGRAM, DAILY
     Dates: start: 20210503
  7. TRIMEPRAZINE TARTRATE [Suspect]
     Active Substance: TRIMEPRAZINE TARTRATE
     Indication: Product used for unknown indication
     Dosage: UNK (6 CAPSULES WHEN NEEDED, MAXIMUM 6/DAY)
     Dates: start: 20220804
  8. SERTRALINE HYDROCHLORIDE [Suspect]
     Active Substance: SERTRALINE HYDROCHLORIDE
     Indication: Anxiety
     Dosage: 500 MILLIGRAM, DAILY
     Dates: start: 20220418
  9. PROPIOMAZINE [Suspect]
     Active Substance: PROPIOMAZINE
     Indication: Product used for unknown indication
     Dosage: 100 MILLIGRAM, DAILY
     Dates: start: 20220421
  10. IBUPROFEN [Concomitant]
     Active Substance: IBUPROFEN
     Indication: Product used for unknown indication
     Dosage: UNK
     Dates: start: 20210621
  11. ACETAMINOPHEN [Concomitant]
     Active Substance: ACETAMINOPHEN
     Indication: Product used for unknown indication
     Dosage: UNK ( WHEN NEEDED)
     Dates: start: 20210511
  12. NYXOID [Concomitant]
     Indication: Product used for unknown indication
     Dosage: UNK (SOLUTION WHEN NEEDED)
     Dates: start: 20210503
  13. NOVALUCOL [Concomitant]
     Indication: Product used for unknown indication
     Dosage: UNK (WHEN NEEDED) AS REQUIRED
     Dates: start: 20210506

REACTIONS (2)
  - Pulmonary artery thrombosis [Fatal]
  - Prescribed overdose [Fatal]

NARRATIVE: CASE EVENT DATE: 20220101
